FAERS Safety Report 9969777 (Version 1)
Quarter: 2014Q1

REPORT INFORMATION
  Report Type: Spontaneous
  Country: US (occurrence: None)
  Receive Date: 20140131
  Receipt Date: 20140131
  Transmission Date: 20141002
  Serious: Yes (Other)
  Sender: FDA-Public Use
  Company Number: 085478

PATIENT
  Age: 67 Year
  Sex: Female

DRUGS (1)
  1. KEPPRA [Suspect]
     Indication: CONVULSION
     Dosage: (250 MG TABLET, ONE AND HALF TABLET IN THE MORNING AND TWO AT BEDTIME)

REACTIONS (2)
  - Grand mal convulsion [None]
  - Drug ineffective [None]
